FAERS Safety Report 14337336 (Version 1)
Quarter: 2017Q4

REPORT INFORMATION
  Report Type: Spontaneous
  Country: US (occurrence: US)
  Receive Date: 20171228
  Receipt Date: 20171228
  Transmission Date: 20180321
  Serious: Yes (Hospitalization)
  Sender: FDA-Public Use
  Company Number: None

PATIENT
  Age: 76 Year
  Sex: Female
  Weight: 63.3 kg

DRUGS (3)
  1. DEXAMETHASONE. [Suspect]
     Active Substance: DEXAMETHASONE
     Dates: end: 20171212
  2. VELCADE [Suspect]
     Active Substance: BORTEZOMIB
     Dates: end: 20171211
  3. LENALIDOMIDE (CC-5013) [Suspect]
     Active Substance: LENALIDOMIDE
     Dates: end: 20171214

REACTIONS (13)
  - Tachycardia [None]
  - Asthenia [None]
  - Anxiety [None]
  - Thoracic vertebral fracture [None]
  - Gait disturbance [None]
  - Arthralgia [None]
  - Procalcitonin increased [None]
  - Spinal cord compression [None]
  - Pneumonia [None]
  - Oedema peripheral [None]
  - Musculoskeletal chest pain [None]
  - Sepsis [None]
  - Respiratory syncytial virus infection [None]

NARRATIVE: CASE EVENT DATE: 20171222
